FAERS Safety Report 8384396-4 (Version None)
Quarter: 2012Q2

REPORT INFORMATION
  Report Type: 
  Country: None (occurrence: None)
  Receive Date: 20120524
  Receipt Date: 20120515
  Transmission Date: 20120825
  Serious: Yes (Death, Hospitalization)
  Sender: FDA-Public Use
  Company Number: US-GLAXOSMITHKLINE-A0906936A

PATIENT
  Sex: Male

DRUGS (7)
  1. AVANDIA [Suspect]
     Indication: DIABETES MELLITUS
     Route: 048
     Dates: start: 19990601, end: 20070101
  2. LANTUS [Concomitant]
  3. ADVAIR DISKUS 100/50 [Concomitant]
  4. TRICOR [Concomitant]
  5. ALBUTEROL [Concomitant]
  6. LEVOTHYROXINE SODIUM [Concomitant]
  7. FLOMAX [Concomitant]

REACTIONS (7)
  - MYOCARDIAL INFARCTION [None]
  - DEATH [None]
  - CARDIAC FAILURE CONGESTIVE [None]
  - CORONARY ARTERY DISEASE [None]
  - ATRIAL FIBRILLATION [None]
  - ISCHAEMIC CARDIOMYOPATHY [None]
  - NON-CARDIAC CHEST PAIN [None]
